FAERS Safety Report 12144307 (Version 1)
Quarter: 2016Q1

REPORT INFORMATION
  Report Type: Spontaneous
  Country: FR (occurrence: FR)
  Receive Date: 20160304
  Receipt Date: 20160304
  Transmission Date: 20160526
  Serious: Yes (Other)
  Sender: FDA-Public Use
  Company Number: FR-ASTRAZENECA-2016SE20800

PATIENT
  Sex: Female

DRUGS (1)
  1. CRESTOR [Suspect]
     Active Substance: ROSUVASTATIN CALCIUM
     Indication: HYPERCHOLESTEROLAEMIA
     Route: 048
     Dates: start: 2013

REACTIONS (4)
  - Muscle spasms [Not Recovered/Not Resolved]
  - Arthralgia [Not Recovered/Not Resolved]
  - Tendonitis [Not Recovered/Not Resolved]
  - Transient ischaemic attack [Unknown]

NARRATIVE: CASE EVENT DATE: 201407
